APPROVED DRUG PRODUCT: BUTALBITAL, ACETAMINOPHEN AND CAFFEINE
Active Ingredient: ACETAMINOPHEN; BUTALBITAL; CAFFEINE
Strength: 300MG;50MG;40MG
Dosage Form/Route: CAPSULE;ORAL
Application: A213046 | Product #001 | TE Code: AA
Applicant: TARO PHARMACEUTICAL INDUSTRIES LTD
Approved: Jul 1, 2020 | RLD: No | RS: No | Type: RX